FAERS Safety Report 17578091 (Version 2)
Quarter: 2020Q4

REPORT INFORMATION
  Report Type: Report from Study
  Country: US (occurrence: US)
  Receive Date: 20200324
  Receipt Date: 20201110
  Transmission Date: 20210113
  Serious: Yes (Other)
  Sender: FDA-Public Use
  Company Number: NVSC2020US078327

PATIENT
  Age: 25 Year
  Sex: Male

DRUGS (3)
  1. CYCLOPHOSPHAMIDE. [Concomitant]
     Active Substance: CYCLOPHOSPHAMIDE
     Indication: CHEMOTHERAPY
     Dosage: UNK
     Route: 065
  2. KYMRIAH [Suspect]
     Active Substance: TISAGENLECLEUCEL
     Indication: B-CELL TYPE ACUTE LEUKAEMIA
     Dosage: (0.7E8 CAR- POSITIVE VIALBEL TCELL)
     Route: 042
     Dates: start: 20191007
  3. FLUDARABINE [Concomitant]
     Active Substance: FLUDARABINE PHOSPHATE
     Indication: CHEMOTHERAPY
     Dosage: UNK
     Route: 065

REACTIONS (14)
  - Upper respiratory tract infection [Unknown]
  - Platelet count decreased [Recovered/Resolved]
  - Brain oedema [Unknown]
  - Depressed level of consciousness [Unknown]
  - Generalised tonic-clonic seizure [Unknown]
  - Haemoglobin decreased [Unknown]
  - Hypoacusis [Unknown]
  - Neurotoxicity [Recovered/Resolved]
  - Enterovirus infection [Unknown]
  - Haematocrit decreased [Unknown]
  - Candida infection [Unknown]
  - Rhinovirus infection [Unknown]
  - Hypogammaglobulinaemia [Unknown]
  - Neutrophil count decreased [Recovered/Resolved]
